FAERS Safety Report 6967416-0 (Version None)
Quarter: 2010Q3

REPORT INFORMATION
  Report Type: 
  Country: None (occurrence: None)
  Receive Date: 20100901
  Receipt Date: 20100827
  Transmission Date: 20110219
  Serious: Yes (Death, Other)
  Sender: FDA-Public Use
  Company Number: 2010SP019200

PATIENT
  Age: 68 Year
  Sex: Male
  Weight: 75 kg

DRUGS (8)
  1. REBETOL [Suspect]
     Indication: HEPATITIS C
     Dosage: 800 MG;QD; PO
     Route: 048
     Dates: start: 20100308, end: 20100315
  2. INTERFERON [Suspect]
     Indication: HEPATITIS C
     Dosage: 6 MIU; QD; IV
     Route: 042
     Dates: start: 20100308, end: 20100315
  3. METHYCOBAL [Concomitant]
  4. URIEF (SILODOSIN) [Concomitant]
  5. AMLODIPINE BESYLATE [Concomitant]
  6. KEISHIBUKURYOUGAN [Concomitant]
  7. FUTHAN [Concomitant]
  8. HEPARIN SODIUM [Concomitant]

REACTIONS (7)
  - BLOOD PRESSURE DECREASED [None]
  - CARDIAC ARREST [None]
  - LEFT VENTRICULAR FAILURE [None]
  - LOSS OF CONSCIOUSNESS [None]
  - NO THERAPEUTIC RESPONSE [None]
  - PULMONARY CONGESTION [None]
  - RESPIRATORY ARREST [None]
